FAERS Safety Report 10556629 (Version 4)
Quarter: 2015Q1

REPORT INFORMATION
  Report Type: Report from Study
  Country: AU (occurrence: AU)
  Receive Date: 20141031
  Receipt Date: 20150218
  Transmission Date: 20150720
  Serious: Yes (Death, Hospitalization)
  Sender: FDA-Public Use
  Company Number: PHHY2014AU142009

PATIENT
  Age: 48 Year
  Sex: Male

DRUGS (1)
  1. CLOZARIL [Suspect]
     Active Substance: CLOZAPINE
     Indication: SCHIZOPHRENIA
     Dosage: 650 OT
     Route: 048
     Dates: start: 19931007, end: 20141212

REACTIONS (9)
  - Neutrophil count increased [Not Recovered/Not Resolved]
  - Weight decreased [Fatal]
  - Metastatic neoplasm [Fatal]
  - Liver function test abnormal [Unknown]
  - Adrenocortical carcinoma [Fatal]
  - Fatigue [Fatal]
  - Dysphagia [Unknown]
  - White blood cell count increased [Not Recovered/Not Resolved]
  - Adrenal mass [Fatal]

NARRATIVE: CASE EVENT DATE: 20140519
